FAERS Safety Report 18414952 (Version 1)
Quarter: 2020Q4

REPORT INFORMATION
  Report Type: Spontaneous
  Country: US (occurrence: US)
  Receive Date: 20201022
  Receipt Date: 20201022
  Transmission Date: 20210114
  Serious: No
  Sender: FDA-Public Use
  Company Number: US-PFIZER INC-2020407674

PATIENT
  Age: 47 Year
  Sex: Female
  Weight: 64.86 kg

DRUGS (1)
  1. GABAPENTIN. [Suspect]
     Active Substance: GABAPENTIN
     Indication: PARAESTHESIA
     Dosage: UNK
     Dates: start: 2019

REACTIONS (6)
  - Loss of personal independence in daily activities [Unknown]
  - Off label use [Unknown]
  - Hyperaesthesia [Unknown]
  - Pain [Unknown]
  - Fatigue [Unknown]
  - Product use in unapproved indication [Unknown]
